FAERS Safety Report 5499383-3 (Version None)
Quarter: 2007Q4

REPORT INFORMATION
  Report Type: 
  Country: None (occurrence: None)
  Receive Date: 20071026
  Receipt Date: 20071022
  Transmission Date: 20080405
  Serious: Yes (Other)
  Sender: FDA-Public Use
  Company Number: A0689860A

PATIENT
  Sex: Female

DRUGS (1)
  1. PAXIL CR [Suspect]
     Indication: ANXIETY
     Dosage: 25MG UNKNOWN
     Route: 048

REACTIONS (6)
  - ADVERSE EVENT [None]
  - DELUSION [None]
  - HYPOMANIA [None]
  - MEDICATION ERROR [None]
  - PERSONALITY CHANGE [None]
  - SOCIAL PROBLEM [None]
